FAERS Safety Report 9814390 (Version 4)
Quarter: 2014Q2

REPORT INFORMATION
  Report Type: Spontaneous
  Country: MT (occurrence: MT)
  Receive Date: 20140113
  Receipt Date: 20140411
  Transmission Date: 20141212
  Serious: Yes (Other)
  Sender: FDA-Public Use
  Company Number: PHHY2014MT002945

PATIENT
  Age: 86 Year
  Sex: Male

DRUGS (2)
  1. ACLASTA [Suspect]
     Indication: OSTEOPOROSIS
     Dosage: 5 MG, ONCE YEARLY
     Route: 042
  2. ANAFRANIL [Concomitant]
     Indication: ANXIETY
     Dosage: 25 MG, TID
     Route: 048

REACTIONS (2)
  - Syncope [Recovered/Resolved]
  - Nervous system disorder [Not Recovered/Not Resolved]
